FAERS Safety Report 12716074 (Version 1)
Quarter: 2016Q3

REPORT INFORMATION
  Report Type: Report from Study
  Country: US (occurrence: US)
  Receive Date: 20160906
  Receipt Date: 20160906
  Transmission Date: 20161109
  Serious: Yes (Hospitalization, Other)
  Sender: FDA-Public Use
  Company Number: US-BIOGEN-2016BI00284924

PATIENT
  Age: 57 Year
  Sex: Female

DRUGS (1)
  1. AVONEX [Suspect]
     Active Substance: INTERFERON BETA-1A
     Indication: MULTIPLE SCLEROSIS
     Route: 065
     Dates: start: 20011013

REACTIONS (7)
  - Myocardial infarction [Recovered/Resolved]
  - Internal haemorrhage [Not Recovered/Not Resolved]
  - Vascular graft [Recovered/Resolved]
  - Diabetes mellitus [Not Recovered/Not Resolved]
  - Staphylococcal infection [Unknown]
  - Postoperative wound infection [Recovered/Resolved]
  - Coronary arterial stent insertion [Unknown]

NARRATIVE: CASE EVENT DATE: 2006
